FAERS Safety Report 23915312 (Version 5)
Quarter: 2024Q3

REPORT INFORMATION
  Report Type: Spontaneous
  Country: US (occurrence: US)
  Receive Date: 20240529
  Receipt Date: 20240913
  Transmission Date: 20241016
  Serious: Yes (Other)
  Sender: REGENERON
  Company Number: US-REGENERON PHARMACEUTICALS, INC.-2024-077764

PATIENT
  Sex: Female

DRUGS (21)
  1. PRALUENT [Suspect]
     Active Substance: ALIROCUMAB
     Indication: Hypercholesterolaemia
     Dosage: 150 MG, Q2W
     Route: 058
     Dates: start: 20190718, end: 20240702
  2. PRALUENT [Suspect]
     Active Substance: ALIROCUMAB
     Dosage: 150 MG, Q2W
     Route: 058
  3. TYLENOL [Concomitant]
     Active Substance: ACETAMINOPHEN
     Indication: Product used for unknown indication
     Dosage: 500 MG, 2 IN THE AM 2 AT NIGHT
     Route: 048
     Dates: start: 20220806, end: 20240415
  4. PACERONE [Concomitant]
     Active Substance: AMIODARONE HYDROCHLORIDE
     Indication: Product used for unknown indication
     Dosage: 100 MG DAILY
     Route: 048
     Dates: start: 20230820, end: 20240415
  5. VITAMIN D NOS [Concomitant]
     Active Substance: CHOLECALCIFEROL\ERGOCALCIFEROL
     Indication: Product used for unknown indication
     Dosage: 5000 [IU]
     Route: 065
  6. LASIX [Concomitant]
     Active Substance: FUROSEMIDE
     Indication: Coronary artery disease
     Dosage: UNK, QD
     Route: 065
  7. LASIX [Concomitant]
     Active Substance: FUROSEMIDE
     Dosage: 40 MG, QD
     Route: 048
  8. LASIX [Concomitant]
     Active Substance: FUROSEMIDE
     Dosage: 20 MG, QD
     Route: 048
     Dates: start: 20240415
  9. COREG [Concomitant]
     Active Substance: CARVEDILOL
     Indication: Product used for unknown indication
     Dosage: 3.125 MG, EVERY 12 (TWELVE)
     Route: 048
     Dates: start: 20230826, end: 20240825
  10. VITAMIN D3 [Concomitant]
     Active Substance: CHOLECALCIFEROL
     Indication: Product used for unknown indication
     Dosage: 5000 UNITS DAILY
     Route: 048
  11. APRESOLINE HYDROCHLORIDE [Concomitant]
     Active Substance: HYDRALAZINE HYDROCHLORIDE
     Indication: Product used for unknown indication
     Dosage: 50 MG, TID
     Route: 048
     Dates: start: 20231206
  12. ATROVENT [Concomitant]
     Active Substance: IPRATROPIUM BROMIDE
     Indication: Product used for unknown indication
     Dosage: 42 UG, 2 SPRAYS, AS NEEDED
     Route: 045
     Dates: start: 20210308
  13. AVAPRO [Concomitant]
     Active Substance: IRBESARTAN
     Indication: Essential hypertension
     Dosage: 150 MG, QD
     Route: 048
     Dates: start: 20240415
  14. NITROSTAT [Concomitant]
     Active Substance: NITROGLYCERIN
     Indication: Chest pain
     Dosage: 0.4 MG, EVERY 5 MINUTES AS NEEDED
     Route: 060
     Dates: start: 20230820, end: 20240415
  15. ASPIRIN [Concomitant]
     Active Substance: ASPIRIN
     Indication: Product used for unknown indication
     Dosage: 81 MG, QD
     Route: 048
     Dates: start: 20220807, end: 20240415
  16. CHOLECALCIFEROL [Concomitant]
     Active Substance: CHOLECALCIFEROL
     Indication: Product used for unknown indication
     Dosage: 5000 UNITS
     Route: 048
  17. SARS-COV-2 VACCINE [Concomitant]
     Indication: Immunisation
     Dosage: UNK
     Dates: start: 20211108
  18. SARS-COV-2 VACCINE [Concomitant]
     Dosage: UNK
     Route: 065
     Dates: start: 20210402
  19. SARS-COV-2 VACCINE [Concomitant]
     Dosage: UNK
     Route: 065
     Dates: start: 20210503
  20. SARS-COV-2 VACCINE [Concomitant]
     Dosage: 0.25 MCG/0.25 ML OR 0.5 MCG/ 0.5ML
     Route: 065
     Dates: start: 20220930
  21. SARS-COV-2 VACCINE [Concomitant]
     Dosage: 50 MCG/0.5 ML
     Route: 065
     Dates: start: 20240109

REACTIONS (13)
  - Tubular breast carcinoma [Unknown]
  - Vascular graft [Unknown]
  - Left ventricular failure [Unknown]
  - Fatigue [Unknown]
  - COVID-19 [Unknown]
  - Non-cardiac chest pain [Unknown]
  - Muscular weakness [Unknown]
  - Arthralgia [Not Recovered/Not Resolved]
  - Muscle tightness [Unknown]
  - Eyelid ptosis [Unknown]
  - Cough [Unknown]
  - Unevaluable event [Unknown]
  - Therapy interrupted [Unknown]

NARRATIVE: CASE EVENT DATE: 20201118
